FAERS Safety Report 21845211 (Version 5)
Quarter: 2023Q1

REPORT INFORMATION
  Report Type: Spontaneous
  Country: US (occurrence: US)
  Receive Date: 20230110
  Receipt Date: 20230321
  Transmission Date: 20230417
  Serious: Yes (Death, Life-Threatening, Hospitalization, Other)
  Sender: FDA-Public Use
  Company Number: US-AMGEN-USASP2023001470

PATIENT
  Age: 72 Year
  Sex: Female

DRUGS (9)
  1. ARANESP [Suspect]
     Active Substance: DARBEPOETIN ALFA
     Indication: Renal disorder
     Dosage: 10 MILLIGRAM, QWK
     Route: 058
     Dates: start: 20170626
  2. ARANESP [Suspect]
     Active Substance: DARBEPOETIN ALFA
     Dosage: 150 MILLIGRAM, QWK
     Route: 058
     Dates: start: 2018
  3. ARANESP [Suspect]
     Active Substance: DARBEPOETIN ALFA
     Dosage: 25 MILLIGRAM
     Route: 058
     Dates: start: 201801, end: 20180311
  4. ARANESP [Suspect]
     Active Substance: DARBEPOETIN ALFA
     Dosage: 40 MILLIGRAM
     Route: 058
     Dates: end: 20180422
  5. ARANESP [Suspect]
     Active Substance: DARBEPOETIN ALFA
     Dosage: 60 MILLIGRAM
     Route: 058
     Dates: start: 20180525
  6. ARANESP [Suspect]
     Active Substance: DARBEPOETIN ALFA
     Dosage: 80 MILLIGRAM
     Route: 058
     Dates: start: 20180715
  7. ARANESP [Suspect]
     Active Substance: DARBEPOETIN ALFA
     Dosage: 150 MILLIGRAM
     Route: 058
     Dates: start: 20180813
  8. MIRCERA [Suspect]
     Active Substance: METHOXY POLYETHYLENE GLYCOL-EPOETIN BETA
     Indication: Product used for unknown indication
     Dosage: 150 MILLIGRAM
     Route: 065
     Dates: start: 20180813
  9. MIRCERA [Suspect]
     Active Substance: METHOXY POLYETHYLENE GLYCOL-EPOETIN BETA
     Dosage: 200 MILLIGRAM, Q2WK
     Route: 065

REACTIONS (14)
  - Cardiac arrest [Fatal]
  - Overdose [Unknown]
  - Asthenia [Unknown]
  - Diarrhoea [Unknown]
  - Fatigue [Unknown]
  - Seizure [Unknown]
  - Product administration error [Unknown]
  - Blood pressure increased [Unknown]
  - Blood test abnormal [Unknown]
  - Drug monitoring procedure not performed [Unknown]
  - Fall [Unknown]
  - Gait inability [Unknown]
  - White blood cell count decreased [Unknown]
  - Haemoglobin abnormal [Unknown]

NARRATIVE: CASE EVENT DATE: 20190101
